FAERS Safety Report 9548461 (Version 1)
Quarter: 2013Q3

REPORT INFORMATION
  Report Type: Spontaneous
  Country: US (occurrence: US)
  Receive Date: 20130924
  Receipt Date: 20130924
  Transmission Date: 20140515
  Serious: No
  Sender: FDA-Public Use
  Company Number: US-PFIZER INC-2013272216

PATIENT
  Age: 53 Year
  Sex: Male

DRUGS (2)
  1. FLECTOR [Suspect]
     Indication: PAIN
     Dosage: UNK
     Route: 062
     Dates: start: 20130801
  2. VOLTAREN [Concomitant]
     Dosage: UNK

REACTIONS (1)
  - Application site haemorrhage [Unknown]
